FAERS Safety Report 17560246 (Version 1)
Quarter: 2020Q1

REPORT INFORMATION
  Report Type: Spontaneous
  Country: US (occurrence: US)
  Receive Date: 20200318
  Receipt Date: 20200318
  Transmission Date: 20200409
  Serious: Yes (Other)
  Sender: FDA-Public Use
  Company Number: None

PATIENT
  Age: 35 Year
  Sex: Female
  Weight: 2.25 kg

DRUGS (1)
  1. HYLENEX RECOMBINANT [Suspect]
     Active Substance: HYALURONIDASE (HUMAN RECOMBINANT)
     Indication: SKIN COSMETIC PROCEDURE
     Dosage: ?          QUANTITY:1 INJECTION(S);?
     Route: 058
     Dates: start: 20200127, end: 20200224

REACTIONS (3)
  - Soft tissue atrophy [None]
  - Dermal filler overcorrection [None]
  - Injection site indentation [None]

NARRATIVE: CASE EVENT DATE: 20200224
